FAERS Safety Report 10725586 (Version 2)
Quarter: 2015Q1

REPORT INFORMATION
  Report Type: Report from Study
  Country: DE (occurrence: DE)
  Receive Date: 20150121
  Receipt Date: 20150128
  Transmission Date: 20150721
  Serious: Yes (Death, Hospitalization)
  Sender: FDA-Public Use
  Company Number: DE-ROCHE-1304273

PATIENT
  Age: 72 Year
  Sex: Female
  Weight: 65 kg

DRUGS (47)
  1. BEVACIZUMAB [Suspect]
     Active Substance: BEVACIZUMAB
     Route: 042
     Dates: start: 20130613, end: 20130613
  2. DIAZEPAM. [Concomitant]
     Active Substance: DIAZEPAM
     Indication: SLEEP DISORDER
     Route: 048
     Dates: start: 20130121
  3. PACLITAXEL. [Concomitant]
     Active Substance: PACLITAXEL
     Indication: BREAST CANCER
     Route: 042
     Dates: start: 20130117
  4. AMBROXOL [Concomitant]
     Active Substance: AMBROXOL
     Indication: HYPERTENSION
     Route: 048
     Dates: start: 20140203, end: 20140215
  5. XELODA [Concomitant]
     Active Substance: CAPECITABINE
     Indication: BREAST CANCER
     Dosage: DAY1-14 OF EACH CYCLE
     Route: 048
     Dates: start: 20140217, end: 20140302
  6. XELODA [Concomitant]
     Active Substance: CAPECITABINE
     Dosage: DAY1-14 OF EACH CYCLE
     Route: 048
     Dates: start: 20140602, end: 20140615
  7. VITAMIN C [Concomitant]
     Active Substance: ASCORBIC ACID
     Route: 065
     Dates: start: 20141106, end: 20141116
  8. OLIMEL [Concomitant]
     Active Substance: AMINO ACIDS\DEXTROSE\SOYBEAN OIL
  9. PACLITAXEL. [Concomitant]
     Active Substance: PACLITAXEL
     Route: 042
     Dates: start: 20130321
  10. XELODA [Concomitant]
     Active Substance: CAPECITABINE
     Dosage: DAY1-14 OF EACH CYCLE
     Route: 048
     Dates: start: 20140623, end: 20140706
  11. XELODA [Concomitant]
     Active Substance: CAPECITABINE
     Dosage: DAY1-14 OF EACH CYCLE
     Route: 048
     Dates: start: 20140804, end: 20140817
  12. ALDARA [Concomitant]
     Active Substance: IMIQUIMOD
     Indication: BASAL CELL CARCINOMA
     Route: 065
     Dates: start: 20140325
  13. VITAMIN B6 [Concomitant]
     Active Substance: PYRIDOXINE HYDROCHLORIDE
     Route: 042
     Dates: start: 20140202, end: 20140215
  14. VITAMIN B6 [Concomitant]
     Active Substance: PYRIDOXINE HYDROCHLORIDE
     Route: 042
     Dates: start: 20141106, end: 20141116
  15. BEVACIZUMAB [Suspect]
     Active Substance: BEVACIZUMAB
     Route: 042
     Dates: start: 20141023
  16. ONDANSETRON [Concomitant]
     Active Substance: ONDANSETRON
     Indication: PROPHYLAXIS OF NAUSEA AND VOMITING
     Route: 042
     Dates: start: 20130117, end: 20130503
  17. PACLITAXEL. [Concomitant]
     Active Substance: PACLITAXEL
     Route: 042
     Dates: start: 20130207
  18. BISOPROLOL [Concomitant]
     Active Substance: BISOPROLOL
     Indication: HYPERTENSION
     Route: 048
     Dates: start: 20060221
  19. BISOPROLOL [Concomitant]
     Active Substance: BISOPROLOL
     Indication: BASAL CELL CARCINOMA
  20. RANITIDIN [Concomitant]
     Active Substance: RANITIDINE HYDROCHLORIDE
     Indication: PROPHYLAXIS
     Route: 042
     Dates: start: 20130117, end: 20130503
  21. XELODA [Concomitant]
     Active Substance: CAPECITABINE
     Dosage: DAY1-14 OF EACH CYCLE
     Route: 048
     Dates: start: 20140512, end: 20140525
  22. XELODA [Concomitant]
     Active Substance: CAPECITABINE
     Dosage: DAY1-14 OF EACH CYCLE
     Route: 048
     Dates: start: 20140714, end: 20140727
  23. VITAMIN C [Concomitant]
     Active Substance: ASCORBIC ACID
     Route: 065
  24. BEVACIZUMAB [Suspect]
     Active Substance: BEVACIZUMAB
     Route: 042
     Dates: start: 20130228, end: 20130228
  25. TAVEGIL [Concomitant]
     Active Substance: CLEMASTINE FUMARATE
     Indication: PROPHYLAXIS
     Route: 042
     Dates: start: 20130117, end: 20130503
  26. XELODA [Concomitant]
     Active Substance: CAPECITABINE
     Dosage: DAY1-14 OF EACH CYCLE
     Route: 048
     Dates: start: 20140825, end: 20140827
  27. FORMOTOP [Concomitant]
     Active Substance: FORMOTEROL FUMARATE
     Indication: COUGH
     Route: 065
     Dates: start: 20140703
  28. VITAMIN B12 [Concomitant]
     Active Substance: CYANOCOBALAMIN
     Route: 042
     Dates: start: 20141106, end: 20141116
  29. CAPVAL (NOSCAPINE) [Concomitant]
     Indication: COUGH
     Route: 048
     Dates: start: 20130926
  30. CODEIN [Concomitant]
     Active Substance: CODEINE
     Indication: COUGH
     Route: 048
     Dates: start: 20130820, end: 20130926
  31. PACLITAXEL. [Concomitant]
     Active Substance: PACLITAXEL
     Route: 042
     Dates: start: 20130502
  32. XELODA [Concomitant]
     Active Substance: CAPECITABINE
     Dosage: DAY1-14 OF EACH CYCLE
     Route: 048
     Dates: start: 20140331, end: 20140413
  33. BISOPROLOL [Concomitant]
     Active Substance: BISOPROLOL
     Indication: PSORIATIC ARTHROPATHY
  34. RAMIPRIL. [Concomitant]
     Active Substance: RAMIPRIL
     Indication: HYPERTENSION
     Dosage: 5/12.5 MG
     Route: 048
     Dates: start: 20130121
  35. PACLITAXEL. [Concomitant]
     Active Substance: PACLITAXEL
     Route: 042
     Dates: start: 20130228
  36. XELODA [Concomitant]
     Active Substance: CAPECITABINE
     Dosage: DAY1-14 OF EACH CYCLE
     Route: 048
     Dates: start: 20140421, end: 20140504
  37. VITAMIN B12 [Concomitant]
     Active Substance: CYANOCOBALAMIN
     Route: 042
     Dates: start: 20140202, end: 20140215
  38. BEVACIZUMAB [Suspect]
     Active Substance: BEVACIZUMAB
     Indication: BREAST CANCER
     Route: 042
     Dates: start: 20130207, end: 20130207
  39. BEVACIZUMAB [Suspect]
     Active Substance: BEVACIZUMAB
     Route: 042
     Dates: start: 20130321, end: 20130321
  40. BEVACIZUMAB [Suspect]
     Active Substance: BEVACIZUMAB
     Route: 042
     Dates: start: 20140130, end: 20140130
  41. BEVACIZUMAB [Suspect]
     Active Substance: BEVACIZUMAB
     Route: 042
     Dates: start: 20140403, end: 20140403
  42. BEVACIZUMAB [Suspect]
     Active Substance: BEVACIZUMAB
     Route: 042
     Dates: start: 20130117, end: 20130117
  43. DEXA [Concomitant]
     Route: 048
     Dates: start: 20130117, end: 20130503
  44. PACLITAXEL. [Concomitant]
     Active Substance: PACLITAXEL
     Route: 042
     Dates: start: 20130411
  45. CANDESARTAN [Concomitant]
     Active Substance: CANDESARTAN
     Indication: HYPERTENSION
     Dosage: 8/6.25 MG
     Route: 048
     Dates: start: 20140203, end: 20140215
  46. XELODA [Concomitant]
     Active Substance: CAPECITABINE
     Dosage: DAY1-14 OF EACH CYCLE
     Route: 048
     Dates: start: 20140310, end: 20140323
  47. PANTOZOL [Concomitant]
     Active Substance: PANTOPRAZOLE SODIUM
     Indication: PROPHYLAXIS
     Route: 042
     Dates: start: 20040205, end: 20140215

REACTIONS (7)
  - Ascites [Not Recovered/Not Resolved]
  - Malignant neoplasm of pleura [Recovered/Resolved]
  - Dyspnoea [Recovered/Resolved]
  - Back pain [Recovered/Resolved]
  - Pleural effusion [Not Recovered/Not Resolved]
  - Malignant neoplasm progression [Fatal]
  - General physical health deterioration [Fatal]

NARRATIVE: CASE EVENT DATE: 20130301
